FAERS Safety Report 5135443-4 (Version None)
Quarter: 2006Q4

REPORT INFORMATION
  Report Type: 
  Country: None (occurrence: None)
  Receive Date: 20061026
  Receipt Date: 20060216
  Transmission Date: 20070319
  Serious: Yes (Hospitalization)
  Sender: FDA-Public Use
  Company Number: LK-GLAXOSMITHKLINE-B0443753A

PATIENT
  Age: 76 Year
  Sex: Male

DRUGS (1)
  1. SERETIDE [Suspect]
     Route: 048
     Dates: start: 20060207, end: 20060207

REACTIONS (3)
  - CIRCULATORY COLLAPSE [None]
  - MALAISE [None]
  - PHARMACEUTICAL PRODUCT COMPLAINT [None]
